FAERS Safety Report 6241383-X (Version None)
Quarter: 2009Q2

REPORT INFORMATION
  Report Type: 
  Country: None (occurrence: None)
  Receive Date: 20090623
  Receipt Date: 20090618
  Transmission Date: 20091009
  Serious: Yes (Hospitalization)
  Sender: FDA-Public Use
  Company Number: US-BRISTOL-MYERS SQUIBB COMPANY-14670244

PATIENT
  Age: 70 Year
  Sex: Male
  Weight: 86 kg

DRUGS (4)
  1. ERBITUX [Suspect]
     Indication: OESOPHAGEAL CARCINOMA
     Dosage: FIRST DOSE: 15JUN09 TAKEN ON 17JUN2009 TOTAL COURSE:6
     Dates: start: 20090615, end: 20090617
  2. CISPLATIN [Suspect]
     Indication: OESOPHAGEAL CARCINOMA
     Dosage: FIRST DOSE: 15JUN09 TAKEN ON 17JUN2009 TOTAL COURSE:6
     Dates: start: 20090615, end: 20090617
  3. TAXOL [Suspect]
     Indication: OESOPHAGEAL CARCINOMA
     Dosage: FIRST DOSE: 15JUN09 TAKEN ON 17JUN2009 TOTAL COURSE:6
     Dates: start: 20090615, end: 20090617
  4. RADIATION THERAPY [Suspect]
     Indication: OESOPHAGEAL CARCINOMA
     Dosage: 1 DF=4860GY FIRST DOSE: 15JUN09 TAKEN ON 17JUN2009 NO OF FRACTIONS:27 NO OF ELAPSED DAYS:37
     Dates: start: 20090615, end: 20090617

REACTIONS (3)
  - DEHYDRATION [None]
  - HYPONATRAEMIA [None]
  - HYPOTENSION [None]
